FAERS Safety Report 16351504 (Version 1)
Quarter: 2019Q2

REPORT INFORMATION
  Report Type: Spontaneous
  Country: US (occurrence: US)
  Receive Date: 20190418
  Receipt Date: 20190418
  Transmission Date: 20190711
  Serious: No
  Sender: FDA-Public Use
  Company Number: None

PATIENT
  Age: 45 Year
  Sex: Female

DRUGS (1)
  1. IMATINIB 400MG TAB (X30) [Suspect]
     Active Substance: IMATINIB
     Route: 048
     Dates: start: 201802

REACTIONS (4)
  - Muscle spasms [None]
  - Nausea [None]
  - Abdominal distension [None]
  - Therapy cessation [None]

NARRATIVE: CASE EVENT DATE: 20190418
